FAERS Safety Report 6143954-8 (Version None)
Quarter: 2009Q2

REPORT INFORMATION
  Report Type: 
  Country: None (occurrence: None)
  Receive Date: 20090406
  Receipt Date: 20090330
  Transmission Date: 20091009
  Serious: Yes (Other)
  Sender: FDA-Public Use
  Company Number: FR-JNJFOC-20090400014

PATIENT
  Age: 33 Year
  Sex: Female

DRUGS (11)
  1. OFLOXACIN [Suspect]
     Indication: RESPIRATORY FAILURE
     Route: 042
  2. MORPHINE [Concomitant]
     Indication: PAIN
     Route: 065
  3. ROCEPHIN [Concomitant]
     Indication: RESPIRATORY FAILURE
     Route: 042
  4. ACUPAN [Concomitant]
     Indication: PAIN
     Route: 065
  5. DOXYCYCLINE [Concomitant]
     Indication: RESPIRATORY FAILURE
     Route: 042
  6. DEPAKENE [Concomitant]
     Indication: EPILEPSY
     Route: 048
  7. TAMIK [Concomitant]
     Route: 065
  8. PREVISCAN [Concomitant]
     Indication: PROPHYLAXIS
     Route: 065
  9. THERALENE [Concomitant]
     Route: 065
  10. NORSET [Concomitant]
     Route: 065
  11. XANAX [Concomitant]
     Route: 065

REACTIONS (3)
  - CONFUSIONAL STATE [None]
  - GRAND MAL CONVULSION [None]
  - INTENTIONAL DRUG MISUSE [None]
